FAERS Safety Report 5299579-X (Version None)
Quarter: 2007Q2

REPORT INFORMATION
  Report Type: 
  Country: None (occurrence: None)
  Receive Date: 20070417
  Receipt Date: 20070404
  Transmission Date: 20071010
  Serious: Yes (Hospitalization)
  Sender: FDA-Public Use
  Company Number: PHEH2007US04177

PATIENT
  Age: 66 Year
  Sex: Male

DRUGS (3)
  1. ZELNORM [Suspect]
     Indication: CONSTIPATION
     Dosage: 6 MG, BID
     Dates: start: 20050101, end: 20070330
  2. MOBIC [Concomitant]
     Indication: ARTHRITIS
     Dates: start: 20050101
  3. HYDROXYZINE [Concomitant]
     Indication: PRURITUS

REACTIONS (1)
  - MYOCARDIAL INFARCTION [None]
